FAERS Safety Report 8884643 (Version 1)
Quarter: 2012Q4

REPORT INFORMATION
  Report Type: 
  Country: CA (occurrence: CA)
  Receive Date: 20121102
  Receipt Date: 20121102
  Transmission Date: 20130627
  Serious: Yes (Hospitalization, Other)
  Sender: FDA-Public Use
  Company Number: CA-PFIZER INC-2012266938

PATIENT
  Age: 65 Year
  Sex: Female

DRUGS (2)
  1. CELEBREX [Suspect]
     Indication: RHEUMATISM
     Dosage: 200 mg daily, UNK
     Dates: start: 200001, end: 200012
  2. PREMARIN [Concomitant]
     Indication: HORMONE REPLACEMENT THERAPY
     Dosage: 0.625 mg, daily
     Route: 048
     Dates: start: 1990, end: 200012

REACTIONS (3)
  - Pulmonary embolism [Unknown]
  - Pleural calcification [Unknown]
  - Ischaemia [Unknown]
